FAERS Safety Report 12651423 (Version 2)
Quarter: 2016Q4

REPORT INFORMATION
  Report Type: Spontaneous
  Country: US (occurrence: US)
  Receive Date: 20160815
  Receipt Date: 20161005
  Transmission Date: 20170207
  Serious: No
  Sender: FDA-Public Use
  Company Number: US-BEH-2016060919

PATIENT
  Sex: Female

DRUGS (4)
  1. CARIMUNE [Suspect]
     Active Substance: HUMAN IMMUNOGLOBULIN G
     Dosage: 6 GM VIAL
     Route: 042
  2. CARIMUNE [Suspect]
     Active Substance: HUMAN IMMUNOGLOBULIN G
     Indication: PRODUCT USED FOR UNKNOWN INDICATION
     Dosage: 12 G VIAL
     Route: 042
  3. CARIMUNE [Suspect]
     Active Substance: HUMAN IMMUNOGLOBULIN G
     Route: 042
     Dates: start: 20160202
  4. CARIMUNE [Suspect]
     Active Substance: HUMAN IMMUNOGLOBULIN G
     Dosage: 12 G VIAL
     Route: 042

REACTIONS (1)
  - Hepatitis B core antibody positive [Unknown]
